FAERS Safety Report 9039539 (Version 1)
Quarter: 2013Q2

REPORT INFORMATION
  Report Type: Spontaneous
  Country: US (occurrence: None)
  Receive Date: 20130123
  Receipt Date: 20130123
  Transmission Date: 20140414
  Serious: Yes (Hospitalization)
  Sender: FDA-Public Use
  Company Number: None

PATIENT
  Age: 77 Year
  Sex: Male
  Weight: 69.85 kg

DRUGS (2)
  1. GEMCITABINE [Suspect]
  2. CISPLATIN [Suspect]

REACTIONS (9)
  - Post procedural myocardial infarction [None]
  - Postoperative ileus [None]
  - Atelectasis [None]
  - Lung consolidation [None]
  - Postoperative renal failure [None]
  - Post procedural diarrhoea [None]
  - Postoperative fever [None]
  - Hypotension [None]
  - Post procedural complication [None]
